FAERS Safety Report 16500679 (Version 1)
Quarter: 2019Q3

REPORT INFORMATION
  Report Type: Spontaneous
  Country: US (occurrence: US)
  Receive Date: 20190701
  Receipt Date: 20190701
  Transmission Date: 20191004
  Serious: Yes (Death, Other)
  Sender: FDA-Public Use
  Company Number: US-AMGEN-USASP2019102831

PATIENT

DRUGS (1)
  1. BLINATUMOMAB [Suspect]
     Active Substance: BLINATUMOMAB
     Indication: ACUTE LYMPHOCYTIC LEUKAEMIA
     Dosage: UNK
     Route: 065

REACTIONS (11)
  - Bacteraemia [Unknown]
  - Gastrointestinal infection [Unknown]
  - Infection [Unknown]
  - Death [Fatal]
  - Neutrophil count decreased [Unknown]
  - Pneumonia [Unknown]
  - Pseudomonal bacteraemia [Unknown]
  - Hypotension [Unknown]
  - Disease progression [Unknown]
  - Pneumonia fungal [Unknown]
  - Lower respiratory tract infection [Unknown]
